FAERS Safety Report 10038400 (Version 1)
Quarter: 2014Q1

REPORT INFORMATION
  Report Type: Spontaneous
  Country: US (occurrence: None)
  Receive Date: 20140306
  Receipt Date: 20140306
  Transmission Date: 20141002
  Serious: Yes (Hospitalization, Other)
  Sender: FDA-Public Use
  Company Number: 163-21880-12061047

PATIENT
  Age: 70 Year
  Sex: Female
  Weight: 114.31 kg

DRUGS (25)
  1. REVLIMID [Suspect]
     Indication: PLASMA CELL MYELOMA
     Dosage: 25 MG, 14 IN 21 D, PO 05/22/2012 - UNKNOWN
     Route: 048
     Dates: start: 20120522
  2. VICODIN ES (VICODIN) [Concomitant]
  3. ACYCLOVIR (ACICLOVIR) (TABLETS) [Concomitant]
  4. ZOFRAN (ONDANSETRON HYDROCHLORIDE) [Concomitant]
  5. DECADRON (DEXAMETHASONE) [Concomitant]
  6. METOPROLOL (METOPROLOL) [Concomitant]
  7. LOSARTAN (LOSARTAN POTASSIUM) (TABLETS) [Concomitant]
  8. HCTZ (HYDROCHLOROTHIAZIDE) [Concomitant]
  9. FENTANYL (FENTANYL) (POULTICE OR PATCH) [Concomitant]
  10. SIMVASTATIN (SIMVASTATIN) (TABLETS) [Concomitant]
  11. HYDROCODONE / ACETAMINOPHEN (REMEDEINE) TABLETS [Concomitant]
  12. OXYGEN (OXYGEN) [Concomitant]
  13. ROCHEPHIN (CEFTRIAXONE SODIUM) [Concomitant]
  14. ALBUTEROL (SALBUTAMOL) (INHALANT) [Concomitant]
  15. DOCUSATE SODIUM (DOCUSATE SODIUM) (CAPSULES) [Concomitant]
  16. ADVAIR (SERETIDE MITE) (INHALANT) [Concomitant]
  17. COUMADIN (WARFARIN SODIUM) TABLETS [Concomitant]
  18. PROTONIX (TABLETS) [Concomitant]
  19. LIPITOR (ATORVASTATIN) [Concomitant]
  20. PEPCID (FAMOTIDINE) [Concomitant]
  21. COZAAR (LOSARTAN POTASSIUM) [Concomitant]
  22. PAXIL (PAROXETINE HYDROCHLORIDE) [Concomitant]
  23. POTASSIUM (POTASSIUM) [Concomitant]
  24. METFORMIN(METFORMIN) [Concomitant]
  25. LOPRESSOR(METOPROLOL TARTRATE) [Concomitant]

REACTIONS (3)
  - Pulmonary embolism [None]
  - Hypoxia [None]
  - Dyspnoea [None]
